FAERS Safety Report 6086818-0 (Version None)
Quarter: 2009Q1

REPORT INFORMATION
  Report Type: 
  Country: None (occurrence: None)
  Receive Date: 20090223
  Receipt Date: 20090211
  Transmission Date: 20090719
  Serious: Yes (Hospitalization)
  Sender: FDA-Public Use
  Company Number: PL-PFIZER INC-2009163133

PATIENT

DRUGS (12)
  1. PREDNISONE [Suspect]
     Indication: PROSTATE CANCER
     Dosage: 5 MG, 2X/DAY
     Route: 048
     Dates: start: 20081205, end: 20090129
  2. BLINDED *PLACEBO [Suspect]
     Indication: PROSTATE CANCER
     Dosage: 37.5 MG, 1X/DAY
     Route: 048
     Dates: start: 20081205, end: 20090128
  3. BLINDED SUNITINIB MALATE [Suspect]
     Indication: PROSTATE CANCER
     Dosage: 37.5 MG, 1X/DAY
     Route: 048
     Dates: start: 20081205, end: 20090128
  4. NADROPARINA [Concomitant]
     Indication: THROMBOSIS
     Dosage: 0.8 ML, 1X/DAY
     Route: 058
  5. OMEPRAZOLE [Concomitant]
     Indication: PROPHYLAXIS
     Dosage: 20 MG, 1X/DAY
     Route: 048
  6. GLICLAZIDE [Concomitant]
     Indication: DIABETES MELLITUS
     Dosage: 0.08 G, 2X/DAY
     Route: 048
  7. MORPHINE SULFATE [Concomitant]
     Indication: ANALGESIA
     Dosage: 10 MG, AS NEEDED
     Route: 048
  8. ALLOPURINOL [Concomitant]
     Indication: BLOOD URIC ACID INCREASED
     Dosage: 0.1 G, 2X/DAY
     Route: 048
  9. CEFTRIAXONE [Concomitant]
     Indication: INFECTION
     Dosage: 2 G, 1X/DAY
     Route: 042
  10. ORNITHINE ASPARTATE [Concomitant]
     Indication: PROPHYLAXIS
     Dosage: 0.15 G, 2X/DAY
     Route: 048
  11. PHOSPHOLIPIDS [Concomitant]
     Indication: PROPHYLAXIS
     Dosage: 0.3 G, 2X/DAY
     Route: 048
  12. FURAGIN [Concomitant]
     Indication: PROPHYLAXIS
     Dosage: 0.05 G, 2X/DAY
     Route: 048

REACTIONS (2)
  - RENAL FAILURE [None]
  - URINARY TRACT INFECTION [None]
